FAERS Safety Report 8476071-2 (Version None)
Quarter: 2012Q2

REPORT INFORMATION
  Report Type: 
  Country: None (occurrence: None)
  Receive Date: 20120628
  Receipt Date: 20120625
  Transmission Date: 20120825
  Serious: Yes (Hospitalization)
  Sender: FDA-Public Use
  Company Number: CA-TEVA-345133USA

PATIENT
  Sex: Female

DRUGS (8)
  1. IBUPROFEN [Concomitant]
     Dates: start: 20120524
  2. HYDROCHLOROTHIAZIDE [Suspect]
     Dates: start: 20090715
  3. RIBAVIRIN [Suspect]
     Dosage: 1000 MILLIGRAM;
     Route: 048
     Dates: start: 20120523
  4. DACLATASVIR [Suspect]
     Indication: HEPATITIS C
     Dosage: 60 MILLIGRAM;
     Route: 048
     Dates: start: 20120523
  5. PEGINTERFERON ALFA-2A [Suspect]
     Indication: HEPATITIS C
     Dosage: 25.7143 MICROGRAM;
     Route: 058
     Dates: start: 20120523
  6. IRBESARTAN [Suspect]
     Dates: start: 20090715
  7. POTASSIUM ACETATE [Concomitant]
     Route: 048
  8. POTASSIUM ACETATE [Concomitant]
     Route: 042

REACTIONS (3)
  - HYPOKALAEMIA [None]
  - CONCUSSION [None]
  - SYNCOPE [None]
